FAERS Safety Report 9152432 (Version 3)
Quarter: 2013Q2

REPORT INFORMATION
  Report Type: Spontaneous
  Country: US (occurrence: US)
  Receive Date: 20130308
  Receipt Date: 20130529
  Transmission Date: 20140414
  Serious: Yes (Hospitalization)
  Sender: FDA-Public Use
  Company Number: US-ASTRAZENECA-2013SE14242

PATIENT
  Age: 17 Month
  Sex: Male

DRUGS (3)
  1. SYNAGIS [Suspect]
     Route: 030
     Dates: start: 20121018, end: 20121120
  2. SYNAGIS [Suspect]
     Route: 030
     Dates: start: 20121018, end: 20121218
  3. SYNAGIS [Suspect]
     Route: 030
     Dates: start: 20121018, end: 20130213

REACTIONS (4)
  - Intraventricular haemorrhage [Recovered/Resolved]
  - Sepsis [Recovered/Resolved]
  - Chronic obstructive pulmonary disease [Unknown]
  - General physical condition abnormal [Unknown]
